FAERS Safety Report 8340842-3 (Version None)
Quarter: 2012Q1

REPORT INFORMATION
  Report Type: 
  Country: None (occurrence: None)
  Receive Date: 20120329
  Receipt Date: 20090818
  Transmission Date: 20120608
  Serious: Yes (Hospitalization, Other)
  Sender: FDA-Public Use
  Company Number: PHEH2009US09579

PATIENT
  Sex: Female

DRUGS (10)
  1. ZOLOFT (SERTRALINE HYDROCHORIDE) (SERTRALINE HYDROCHLORIDE) [Concomitant]
  2. XANAX [Concomitant]
  3. EXELON [Suspect]
     Dates: start: 20080325
  4. VERAPAMIL [Concomitant]
  5. ALBUTEROL SULFATE [Concomitant]
  6. DIOVAN [Concomitant]
  7. SENNA-S (DOCUSATE SODIUM/SENNA ALEXANDRINA) (DOCUSATE SODIUM, SENNA, S [Concomitant]
  8. BUSPAR [Concomitant]
  9. PLAVIX [Concomitant]
  10. POTASSIUM CHLORIDE [Concomitant]

REACTIONS (10)
  - CONFUSIONAL STATE [None]
  - REHABILITATION THERAPY [None]
  - DECREASED APPETITE [None]
  - ARRHYTHMIA [None]
  - WEIGHT DECREASED [None]
  - FALL [None]
  - AGITATION [None]
  - RIB FRACTURE [None]
  - DEPRESSION [None]
  - INSOMNIA [None]
